FAERS Safety Report 10545162 (Version 2)
Quarter: 2014Q4

REPORT INFORMATION
  Report Type: Spontaneous
  Country: US (occurrence: US)
  Receive Date: 20141027
  Receipt Date: 20141120
  Transmission Date: 20150529
  Serious: Yes (Hospitalization, Other)
  Sender: FDA-Public Use
  Company Number: US-ELI_LILLY_AND_COMPANY-US201410008591

PATIENT
  Sex: Male
  Weight: 105.67 kg

DRUGS (2)
  1. INSULIN HUMAN [Suspect]
     Active Substance: INSULIN HUMAN
     Indication: TYPE 2 DIABETES MELLITUS
     Dosage: UNK UNK, OTHER
     Route: 058
  2. INSULIN HUMAN [Suspect]
     Active Substance: INSULIN HUMAN
     Dosage: UNK UNK, OTHER
     Route: 058

REACTIONS (5)
  - Blood glucose increased [Recovering/Resolving]
  - Arterial occlusive disease [Recovering/Resolving]
  - Angina pectoris [Recovering/Resolving]
  - Drug ineffective [Recovering/Resolving]
  - Wrong technique in drug usage process [Unknown]
